FAERS Safety Report 11139102 (Version 1)
Quarter: 2015Q2

REPORT INFORMATION
  Report Type: Spontaneous
  Country: US (occurrence: None)
  Receive Date: 20150526
  Receipt Date: 20150526
  Transmission Date: 20150821
  Serious: No
  Sender: FDA-Public Use
  Company Number: None

PATIENT
  Sex: Female

DRUGS (1)
  1. SUTENT [Suspect]
     Active Substance: SUNITINIB MALATE
     Dosage: 50 MG DAILY FOR 4 WEEKS AND OFF 2 BY MOUTH
     Route: 048
     Dates: start: 20141002

REACTIONS (3)
  - Diverticulitis [None]
  - Surgery [None]
  - Hypoaesthesia [None]
